FAERS Safety Report 7327417-X (Version None)
Quarter: 2011Q1

REPORT INFORMATION
  Report Type: 
  Country: None (occurrence: None)
  Receive Date: 20110303
  Receipt Date: 20110218
  Transmission Date: 20110831
  Serious: Yes (Other)
  Sender: FDA-Public Use
  Company Number: BR-AMGEN-BRASP2011010554

PATIENT
  Age: 49 Year
  Sex: Female
  Weight: 103 kg

DRUGS (8)
  1. ATENOLOL [Concomitant]
     Indication: BLOOD PRESSURE INCREASED
     Dosage: 100 MG, 1X/DAY
     Dates: start: 20100401
  2. BROMAZEPAM [Concomitant]
     Dosage: UNK
  3. SIMVASTATIN [Concomitant]
     Indication: BLOOD CHOLESTEROL
     Dosage: 20 MG, 1X/DAY
     Dates: start: 20100401
  4. FUROSEMIDE [Concomitant]
     Dosage: UNK
     Dates: start: 20100101
  5. FLUOXETINE [Concomitant]
     Indication: DEPRESSION
     Dosage: 30 MG, QD
     Dates: start: 20110101
  6. ENBREL [Suspect]
     Indication: PSORIASIS
     Dosage: 50 MG, ONCE A WEEK
     Route: 058
     Dates: start: 20101101
  7. PURAN T4 [Concomitant]
     Indication: HYPOTHYROIDISM
     Dosage: UNK UNK, QD
     Dates: start: 20050101
  8. GARCINIA CAMBOGIA COMP [Concomitant]
     Indication: WEIGHT DECREASED
     Dosage: 240 MG, UNK
     Dates: start: 20100101

REACTIONS (3)
  - DIABETES MELLITUS [None]
  - OEDEMA PERIPHERAL [None]
  - WEIGHT INCREASED [None]
